FAERS Safety Report 25240789 (Version 2)
Quarter: 2025Q2

REPORT INFORMATION
  Report Type: Spontaneous
  Country: EG (occurrence: EG)
  Receive Date: 20250425
  Receipt Date: 20250429
  Transmission Date: 20250717
  Serious: Yes (Death, Hospitalization)
  Sender: JOHNSON AND JOHNSON
  Company Number: EG-JNJFOC-20250430782

PATIENT
  Sex: Male

DRUGS (2)
  1. TECVAYLI [Suspect]
     Active Substance: TECLISTAMAB-CQYV
     Indication: Plasma cell myeloma
     Route: 065
  2. ACTEMRA [Concomitant]
     Active Substance: TOCILIZUMAB
     Indication: Prophylaxis

REACTIONS (5)
  - Cardiac arrest [Fatal]
  - Hypotension [Unknown]
  - Headache [Unknown]
  - Ear pain [Unknown]
  - Haemoglobin decreased [Unknown]
